FAERS Safety Report 4677851-1 (Version None)
Quarter: 2005Q2

REPORT INFORMATION
  Report Type: 
  Country: None (occurrence: None)
  Receive Date: 20050531
  Receipt Date: 20050502
  Transmission Date: 20051028
  Serious: Yes (Death, Hospitalization, Other)
  Sender: FDA-Public Use
  Company Number: US-BRISTOL-MYERS SQUIBB COMPANY-12952834

PATIENT
  Age: 56 Year
  Sex: Male
  Weight: 84 kg

DRUGS (4)
  1. CETUXIMAB [Suspect]
     Indication: PANCREATIC CARCINOMA
     Dosage: 3745 MG TOTAL DOSE THIS COURSE.
     Route: 042
     Dates: start: 20050316, end: 20050316
  2. DOCETAXEL [Suspect]
     Indication: PANCREATIC CARCINOMA
     Dosage: 300 MG TOTAL THIS COURSE.
     Route: 042
     Dates: start: 20050224, end: 20050224
  3. IRINOTECAN [Suspect]
     Indication: PANCREATIC CARCINOMA
     Dosage: 428 MG TOTAL THIS COURSE.
     Route: 042
     Dates: start: 20050224, end: 20050224
  4. ENOXAPARIN SODIUM [Suspect]
     Indication: THROMBOSIS
     Dosage: 7840 MG TOTAL DOSE THIS COURSE.
     Route: 058
     Dates: start: 20050320, end: 20050320

REACTIONS (7)
  - ABDOMINAL DISTENSION [None]
  - ABDOMINAL PAIN [None]
  - CEREBRAL HAEMORRHAGE [None]
  - DISSEMINATED INTRAVASCULAR COAGULATION [None]
  - MALIGNANT NEOPLASM PROGRESSION [None]
  - PLATELET COUNT DECREASED [None]
  - WHITE BLOOD CELL COUNT DECREASED [None]
